FAERS Safety Report 17852756 (Version 1)
Quarter: 2020Q2

REPORT INFORMATION
  Report Type: Spontaneous
  Country: US (occurrence: US)
  Receive Date: 20200602
  Receipt Date: 20200602
  Transmission Date: 20200714
  Serious: No
  Sender: FDA-Public Use
  Company Number: US-FOUNDATIONCONSUMERHC-2019-US-023767

PATIENT
  Age: 29 Year
  Sex: Female
  Weight: 56.7 kg

DRUGS (3)
  1. PLAN B ONE-STEP [Suspect]
     Active Substance: LEVONORGESTREL
     Indication: POST COITAL CONTRACEPTION
     Dosage: 1.5 MG X 3 DOSES (2010, 30-NOV-2019, AND 04-DEC-2019)
     Route: 048
     Dates: start: 2010, end: 20191204
  2. IBUPROFEN. [Concomitant]
     Active Substance: IBUPROFEN
     Dosage: SOMETIMES
  3. TYLENOL [Concomitant]
     Active Substance: ACETAMINOPHEN
     Dosage: SOMETIMES

REACTIONS (2)
  - Vaginal haemorrhage [Not Recovered/Not Resolved]
  - Vaginal haemorrhage [Recovered/Resolved]

NARRATIVE: CASE EVENT DATE: 2010
